FAERS Safety Report 12679012 (Version 7)
Quarter: 2018Q4

REPORT INFORMATION
  Report Type: Spontaneous
  Country: DE (occurrence: DE)
  Receive Date: 20160824
  Receipt Date: 20181006
  Transmission Date: 20190204
  Serious: Yes (Death, Hospitalization, Other)
  Sender: FDA-Public Use
  Company Number: DE-BRISTOL-MYERS SQUIBB COMPANY-BMS-2016-068083

PATIENT
  Age: 55 Year
  Sex: Male
  Weight: 72 kg

DRUGS (10)
  1. FILGRASTIM [Concomitant]
     Active Substance: FILGRASTIM
     Indication: PRODUCT USED FOR UNKNOWN INDICATION
     Dosage: 1 DF, QD
     Route: 058
  2. OPDIVO [Suspect]
     Active Substance: NIVOLUMAB
     Indication: METASTATIC SQUAMOUS CELL CARCINOMA
     Dosage: 3 MG/KG, Q2WK
     Route: 065
  3. OPDIVO [Suspect]
     Active Substance: NIVOLUMAB
     Indication: PRODUCT USED FOR UNKNOWN INDICATION
     Dosage: 200 MG, UNK
     Route: 042
     Dates: start: 20160614
  4. PREDNISOLONE. [Concomitant]
     Active Substance: PREDNISOLONE
     Indication: PULMONARY SARCOIDOSIS
     Dosage: 10 MG, QD
     Route: 048
  5. METAMIZOL                          /06276702/ [Suspect]
     Active Substance: METAMIZOLE
     Indication: METASTATIC SQUAMOUS CELL CARCINOMA
     Dosage: 500 MG, UNK
     Route: 048
     Dates: start: 20160717, end: 20160723
  6. METAMIZOL                          /06276702/ [Suspect]
     Active Substance: METAMIZOLE
     Indication: PAIN
     Dosage: 1 DF, QD
     Route: 048
     Dates: start: 20160717, end: 20160723
  7. RIVAROXABAN [Concomitant]
     Active Substance: RIVAROXABAN
     Indication: PULMONARY EMBOLISM
     Dosage: 20 MG, QD
     Route: 048
     Dates: start: 201603
  8. PEGFILGRASTIM [Concomitant]
     Active Substance: PEGFILGRASTIM
     Indication: PRODUCT USED FOR UNKNOWN INDICATION
     Dosage: 6 MG, UNK
     Route: 065
     Dates: start: 20160727
  9. PREDNISOLONE. [Concomitant]
     Active Substance: PREDNISOLONE
     Indication: PRODUCT USED FOR UNKNOWN INDICATION
     Dosage: 100 MG, QD
     Route: 042
     Dates: start: 20160725
  10. FILGRASTIM [Concomitant]
     Active Substance: FILGRASTIM
     Indication: PRODUCT USED FOR UNKNOWN INDICATION
     Route: 065

REACTIONS (16)
  - Septic shock [Fatal]
  - Diverticular perforation [Fatal]
  - Erythropoiesis abnormal [Unknown]
  - Bone marrow failure [Fatal]
  - Neutropenia [Unknown]
  - Clostridium test positive [Unknown]
  - Product use in unapproved indication [Unknown]
  - Atypical pneumonia [Fatal]
  - Sepsis [Fatal]
  - Agranulocytosis [Fatal]
  - Aplasia [Not Recovered/Not Resolved]
  - Enteritis [Fatal]
  - Colitis [Fatal]
  - Respiratory fatigue [Fatal]
  - Acute respiratory distress syndrome [Fatal]
  - Enterococcal infection [Unknown]

NARRATIVE: CASE EVENT DATE: 201607
